FAERS Safety Report 9381457 (Version 4)
Quarter: 2013Q3

REPORT INFORMATION
  Report Type: Spontaneous
  Country: GB (occurrence: GB)
  Receive Date: 20130703
  Receipt Date: 20130919
  Transmission Date: 20140515
  Serious: Yes (Hospitalization)
  Sender: FDA-Public Use
  Company Number: PHFR2013GB003758

PATIENT
  Sex: Male

DRUGS (6)
  1. CLOZARIL [Suspect]
     Indication: SCHIZOPHRENIA
     Dosage: 50 MG
     Route: 048
     Dates: start: 20010701
  2. CLOZARIL [Suspect]
     Dosage: 14X25 MG (350 MG)
     Dates: start: 20130629
  3. CLOZARIL [Suspect]
     Dosage: UNK
  4. CLOZARIL [Suspect]
     Dosage: RETITRATED
  5. ZOPICLONE [Concomitant]
     Dosage: UNK UKN, UNK
  6. DIAZEPAM [Concomitant]
     Dosage: UNK UKN, UNK

REACTIONS (4)
  - Incorrect dose administered [Recovered/Resolved]
  - Chemical poisoning [Recovered/Resolved]
  - Renal impairment [Recovered/Resolved]
  - Dysphagia [Recovered/Resolved]
